FAERS Safety Report 8785496 (Version 2)
Quarter: 2012Q4

REPORT INFORMATION
  Report Type: 
  Country: IT (occurrence: IT)
  Receive Date: 20120914
  Receipt Date: 20121008
  Transmission Date: 20130627
  Serious: Yes (Other)
  Sender: FDA-Public Use
  Company Number: IT-PFIZER INC-2012219667

PATIENT
  Age: 78 Year
  Sex: Female

DRUGS (1)
  1. TRIATEC [Suspect]
     Indication: HYPERTENSION
     Dosage: 10 mg, Daily
     Route: 048
     Dates: start: 20120820, end: 20120823

REACTIONS (2)
  - Dyspnoea [Not Recovered/Not Resolved]
  - Throat tightness [Not Recovered/Not Resolved]
